FAERS Safety Report 9640267 (Version 1)
Quarter: 2013Q4

REPORT INFORMATION
  Report Type: Spontaneous
  Country: US (occurrence: US)
  Receive Date: 20131023
  Receipt Date: 20131023
  Transmission Date: 20140711
  Serious: Yes (Hospitalization)
  Sender: FDA-Public Use
  Company Number: US-BAYER-2013-127208

PATIENT
  Age: 27 Year
  Sex: Female

DRUGS (10)
  1. YASMIN [Suspect]
  2. KLONOPIN [Concomitant]
     Dosage: 1 MG, UNK
     Route: 048
     Dates: start: 20060130, end: 20060605
  3. ALPRAZOLAM [Concomitant]
     Indication: PANIC ATTACK
     Dosage: 0.25 MG, PRN
     Route: 048
     Dates: start: 20060130, end: 20060717
  4. CYMBALTA [Concomitant]
     Dosage: 30 MG, UNK
     Route: 048
     Dates: start: 20060202, end: 20060605
  5. HYDROCODONE W/APAP [Concomitant]
     Indication: PAIN
     Dosage: 7.5/500 MG EVERY 8 HOURS (AS NEEDED)
     Dates: start: 20060716
  6. IBUPROFEN [Concomitant]
     Dosage: UNK
     Dates: start: 20060718
  7. XANAX [Concomitant]
  8. DILAUDID [Concomitant]
     Dosage: 0.5 MG, UNK
     Route: 042
  9. PHENERGAN [Concomitant]
     Dosage: 12.5 MG, UNK
     Route: 042
  10. VICODIN [Concomitant]

REACTIONS (3)
  - Pulmonary embolism [Recovered/Resolved]
  - Pulmonary infarction [None]
  - Haemoptysis [Recovered/Resolved]
